FAERS Safety Report 9171911 (Version 1)
Quarter: 2013Q1

REPORT INFORMATION
  Report Type: Spontaneous
  Country: US (occurrence: US)
  Receive Date: 20130319
  Receipt Date: 20130319
  Transmission Date: 20140127
  Serious: Yes (Other)
  Sender: FDA-Public Use
  Company Number: US-AMGEN-USASP2013016530

PATIENT
  Sex: Female

DRUGS (1)
  1. NPLATE [Suspect]
     Indication: SURGERY
     Dosage: UNK
     Dates: start: 201212

REACTIONS (1)
  - Platelet count decreased [Unknown]
